FAERS Safety Report 22111987 (Version 1)
Quarter: 2023Q1

REPORT INFORMATION
  Report Type: Spontaneous
  Country: FI (occurrence: FI)
  Receive Date: 20230318
  Receipt Date: 20230318
  Transmission Date: 20230418
  Serious: Yes (Hospitalization)
  Sender: FDA-Public Use
  Company Number: None

PATIENT
  Age: 31 Year
  Sex: Female

DRUGS (1)
  1. AIMOVIG [Suspect]
     Active Substance: ERENUMAB-AOOE
     Indication: Hemiplegic migraine
     Dosage: UNK, (70 MG X2)
     Route: 058
     Dates: start: 20220906

REACTIONS (6)
  - Urticaria [Recovered/Resolved]
  - Hemiparesis [Recovered/Resolved]
  - Obsessive thoughts [Recovered/Resolved]
  - Anxiety [Recovered/Resolved]
  - Aura [Recovered/Resolved]
  - Self-injurious ideation [Recovered/Resolved]

NARRATIVE: CASE EVENT DATE: 20220906
